FAERS Safety Report 8315625 (Version 4)
Quarter: 2012Q4

REPORT INFORMATION
  Report Type: Report from Study
  Country: US (occurrence: US)
  Receive Date: 20111229
  Receipt Date: 20121203
  Transmission Date: 20130627
  Serious: Yes (Hospitalization)
  Sender: FDA-Public Use
  Company Number: US-UCBSA-047828

PATIENT
  Age: 53 Year
  Sex: Female
  Weight: 68.9 kg

DRUGS (6)
  1. CIMZIA [Suspect]
     Indication: CROHN^S DISEASE
     Route: 058
     Dates: start: 20090622, end: 201001
  2. AVELOX [Concomitant]
  3. LIALDA [Concomitant]
     Indication: CROHN^S DISEASE
     Dosage: EVERY MORNING ,ENTERIC COATED
     Route: 048
     Dates: start: 20090518
  4. PREDNISONE [Concomitant]
     Indication: CROHN^S DISEASE
     Dates: start: 1989
  5. AZATHIOPRINE [Concomitant]
     Indication: CROHN^S DISEASE
     Dates: start: 20090519
  6. SYNTHROID [Concomitant]
     Route: 048
     Dates: start: 20100114

REACTIONS (1)
  - Pneumonia [Recovered/Resolved]
